FAERS Safety Report 5271596-5 (Version None)
Quarter: 2007Q1

REPORT INFORMATION
  Report Type: 
  Country: None (occurrence: None)
  Receive Date: 20070321
  Receipt Date: 20070309
  Transmission Date: 20070707
  Serious: Yes (Other)
  Sender: FDA-Public Use
  Company Number: CH-PFIZER INC-2007018231

PATIENT
  Age: 63 Year
  Sex: Female

DRUGS (8)
  1. LYRICA [Suspect]
     Indication: POLYNEUROPATHY
     Route: 048
  2. LEXOTANIL [Suspect]
     Route: 048
  3. STILNOX [Suspect]
     Route: 048
  4. NEBILET [Concomitant]
     Dosage: DAILY DOSE:5MG-FREQ:DAILY
     Route: 048
  5. COVERSUM [Concomitant]
     Route: 048
  6. ELTROXIN [Concomitant]
     Dosage: DAILY DOSE:.1MG-FREQ:DAILY
     Route: 048
  7. MEVALOTIN [Concomitant]
     Route: 048
  8. ACETYLSALICYLIC ACID SRT [Concomitant]
     Dosage: DAILY DOSE:100MG-FREQ:DAILY
     Route: 048

REACTIONS (2)
  - EYE PAIN [None]
  - VISUAL FIELD DEFECT [None]
